FAERS Safety Report 6750065-7 (Version None)
Quarter: 2010Q2

REPORT INFORMATION
  Report Type: 
  Country: None (occurrence: None)
  Receive Date: 20100601
  Receipt Date: 20100520
  Transmission Date: 20101027
  Serious: Yes (Hospitalization, Other)
  Sender: FDA-Public Use
  Company Number: US-PFIZER INC-001-0981-997296

PATIENT
  Sex: Female
  Weight: 71.2 kg

DRUGS (4)
  1. LIPITOR [Suspect]
     Indication: BLOOD CHOLESTEROL INCREASED
     Dosage: 10 MG, UNK
     Route: 048
     Dates: start: 19981001, end: 20090926
  2. LIPITOR [Suspect]
     Dosage: 1/2 OF 10 MG TABLET DAILY
     Route: 048
     Dates: start: 19990401, end: 19990926
  3. LOPID [Suspect]
     Dosage: 600 MG, 2X/DAY
  4. GLUCOPHAGE [Concomitant]
     Dates: start: 19981001

REACTIONS (7)
  - ASTHENIA [None]
  - FATIGUE [None]
  - HYPOAESTHESIA [None]
  - MUSCLE SPASMS [None]
  - MUSCULAR WEAKNESS [None]
  - PAIN [None]
  - SUPRAVENTRICULAR TACHYCARDIA [None]
